FAERS Safety Report 5371549-2 (Version None)
Quarter: 2007Q2

REPORT INFORMATION
  Report Type: 
  Country: None (occurrence: None)
  Receive Date: 20070625
  Receipt Date: 20070625
  Transmission Date: 20071010
  Serious: Yes (Hospitalization)
  Sender: FDA-Public Use
  Company Number: None

PATIENT
  Age: 66 Year
  Sex: Male

DRUGS (1)
  1. PIPERACILLIN AND TAZOBACTAM [Suspect]
     Indication: DIABETIC FOOT
     Dosage: 3.375GM QID IV
     Route: 042
     Dates: start: 20070205, end: 20070312

REACTIONS (4)
  - EOSINOPHILIA [None]
  - NEPHRITIS INTERSTITIAL [None]
  - PRURITUS [None]
  - RENAL FAILURE ACUTE [None]
